FAERS Safety Report 6139904-0 (Version None)
Quarter: 2009Q2

REPORT INFORMATION
  Report Type: 
  Country: None (occurrence: None)
  Receive Date: 20090401
  Receipt Date: 20090319
  Transmission Date: 20091009
  Serious: Yes (Other)
  Sender: FDA-Public Use
  Company Number: GB-TEVA-189389ISR

PATIENT
  Age: 61 Year
  Sex: Female
  Weight: 96 kg

DRUGS (1)
  1. DOXAZOSIN MESYLATE [Suspect]
     Indication: HYPERTENSION
     Route: 048
     Dates: start: 20090114, end: 20090127

REACTIONS (6)
  - ABDOMINAL DISTENSION [None]
  - BLOOD CREATININE INCREASED [None]
  - DYSPNOEA [None]
  - PAIN IN EXTREMITY [None]
  - RENAL IMPAIRMENT [None]
  - RHINITIS [None]
